APPROVED DRUG PRODUCT: LABETALOL HYDROCHLORIDE
Active Ingredient: LABETALOL HYDROCHLORIDE
Strength: 400MG
Dosage Form/Route: TABLET;ORAL
Application: A209603 | Product #004
Applicant: APPCO PHARMA LLC
Approved: Oct 18, 2024 | RLD: No | RS: No | Type: RX